FAERS Safety Report 17883615 (Version 3)
Quarter: 2020Q2

REPORT INFORMATION
  Report Type: Report from Study
  Country: None (occurrence: AU)
  Receive Date: 20200611
  Receipt Date: 20200616
  Transmission Date: 20200714
  Serious: Yes (Hospitalization)
  Sender: FDA-Public Use
  Company Number: AU-ABBVIE-20K-008-3437460-00

PATIENT
  Sex: Female

DRUGS (1)
  1. DUODOPA [Suspect]
     Active Substance: CARBIDOPA\LEVODOPA
     Indication: PARKINSON^S DISEASE
     Route: 050
     Dates: start: 20190626

REACTIONS (5)
  - Rib fracture [Unknown]
  - Parkinson^s disease [Unknown]
  - Fall [Unknown]
  - Device issue [Recovered/Resolved]
  - Constipation [Not Recovered/Not Resolved]
